FAERS Safety Report 21877037 (Version 2)
Quarter: 2023Q1

REPORT INFORMATION
  Report Type: Report from Study
  Country: US (occurrence: US)
  Receive Date: 20230118
  Receipt Date: 20230120
  Transmission Date: 20230417
  Serious: Yes (Other)
  Sender: FDA-Public Use
  Company Number: US-ABBVIE-4270740

PATIENT
  Age: 77 Year
  Sex: Female

DRUGS (2)
  1. HUMIRA [Suspect]
     Active Substance: ADALIMUMAB
     Indication: Psoriasis
     Route: 058
     Dates: start: 20220621
  2. HUMIRA [Suspect]
     Active Substance: ADALIMUMAB
     Route: 058
     Dates: end: 202102

REACTIONS (6)
  - Cardiac operation [Recovering/Resolving]
  - Post procedural infection [Unknown]
  - Procedural pain [Unknown]
  - Mammoplasty [Unknown]
  - Psoriasis [Unknown]
  - Skin plaque [Recovered/Resolved]

NARRATIVE: CASE EVENT DATE: 20210201
